FAERS Safety Report 9057868 (Version 1)
Quarter: 2013Q1

REPORT INFORMATION
  Report Type: Spontaneous
  Country: US (occurrence: None)
  Receive Date: 20130204
  Receipt Date: 20130204
  Transmission Date: 20140127
  Serious: Yes (Disabling)
  Sender: FDA-Public Use
  Company Number: None

PATIENT
  Age: 39 Year
  Sex: Female
  Weight: 54.43 kg

DRUGS (1)
  1. LEVOFLOXACIN [Suspect]
     Indication: EAR INFECTION
     Route: 048
     Dates: start: 20130129, end: 20130130

REACTIONS (4)
  - Pain in extremity [None]
  - Visual impairment [None]
  - Abasia [None]
  - Dizziness [None]
